FAERS Safety Report 25896237 (Version 1)
Quarter: 2025Q4

REPORT INFORMATION
  Report Type: Spontaneous
  Country: EU (occurrence: EU)
  Receive Date: 20251008
  Receipt Date: 20251008
  Transmission Date: 20260118
  Serious: Yes (Hospitalization)
  Sender: VERTEX
  Company Number: EU-VERTEX PHARMACEUTICALS-2025-016261

PATIENT
  Age: 11 Year
  Sex: Female
  Weight: 28 kg

DRUGS (3)
  1. ELEXACAFTOR\IVACAFTOR\TEZACAFTOR [Suspect]
     Active Substance: ELEXACAFTOR\IVACAFTOR\TEZACAFTOR
     Indication: Cystic fibrosis
     Dosage: TWO TABLETS (37.5 MG IVA/ 25 MG TEZA/ 50 MG ELEXA)
     Route: 048
  2. KALYDECO [Suspect]
     Active Substance: IVACAFTOR
     Indication: Cystic fibrosis
     Dosage: ONE TABLET 75 MG IVA
     Route: 048
     Dates: end: 202312
  3. KALYDECO [Suspect]
     Active Substance: IVACAFTOR
     Dosage: ONE TABLET 75 MG IVA
     Route: 048
     Dates: start: 2024

REACTIONS (2)
  - Forced expiratory volume decreased [Not Recovered/Not Resolved]
  - Drug level below therapeutic [Not Recovered/Not Resolved]

NARRATIVE: CASE EVENT DATE: 20240101
